FAERS Safety Report 14831231 (Version 1)
Quarter: 2018Q2

REPORT INFORMATION
  Report Type: Spontaneous
  Country: RU (occurrence: RU)
  Receive Date: 20180501
  Receipt Date: 20180501
  Transmission Date: 20180711
  Serious: Yes (Hospitalization)
  Sender: FDA-Public Use
  Company Number: RU-ASTRAZENECA-2017SE99148

PATIENT
  Age: 57 Year
  Sex: Male
  Weight: 77 kg

DRUGS (7)
  1. ATORVASTATIN [Concomitant]
     Active Substance: ATORVASTATIN
  2. ACETYLSALICYLIC ACID [Concomitant]
     Active Substance: ASPIRIN
  3. INTEGRILIN [Concomitant]
     Active Substance: EPTIFIBATIDE
  4. BETALOC ZOK [Concomitant]
     Active Substance: METOPROLOL SUCCINATE
  5. BRILINTA [Suspect]
     Active Substance: TICAGRELOR
     Indication: MYOCARDIAL INFARCTION
     Route: 048
     Dates: start: 201705
  6. OMEPRAZOLE. [Concomitant]
     Active Substance: OMEPRAZOLE
  7. SYDNOPHARM [Concomitant]

REACTIONS (5)
  - Drug dose omission [Unknown]
  - Arrhythmia [Recovering/Resolving]
  - Chest pain [Recovered/Resolved]
  - Presyncope [Not Recovered/Not Resolved]
  - Myocardial infarction [Recovering/Resolving]

NARRATIVE: CASE EVENT DATE: 201706
